FAERS Safety Report 16525167 (Version 4)
Quarter: 2020Q2

REPORT INFORMATION
  Report Type: Spontaneous
  Country: JP (occurrence: JP)
  Receive Date: 20190702
  Receipt Date: 20200403
  Transmission Date: 20200713
  Serious: Yes (Disabling)
  Sender: FDA-Public Use
  Company Number: PHJP2019JP007741

PATIENT
  Age: 26 Year
  Sex: Female
  Weight: 43 kg

DRUGS (7)
  1. EXJADE [Suspect]
     Active Substance: DEFERASIROX
     Indication: IRON OVERLOAD
     Dosage: 625-750 MG
     Route: 048
     Dates: start: 20120405, end: 20180701
  2. BAKTAR [Concomitant]
     Active Substance: SULFAMETHOXAZOLE\TRIMETHOPRIM
     Indication: INFECTION PROPHYLAXIS
     Dosage: 480 MG, BID
     Route: 065
  3. FOLIAMIN [Concomitant]
     Active Substance: FOLIC ACID
     Indication: APLASTIC ANAEMIA
     Dosage: 5 MG, BID
     Route: 048
  4. ADONA [Concomitant]
     Indication: HAEMOSTASIS
     Dosage: 30 MG, BID
     Route: 048
  5. URSO [Concomitant]
     Active Substance: URSODIOL
     Indication: PROPHYLAXIS
     Dosage: 100 MG, TID
     Route: 048
  6. REVOLADE [Concomitant]
     Active Substance: ELTROMBOPAG
     Indication: APLASTIC ANAEMIA
     Dosage: 50 MG
     Route: 048
     Dates: start: 20171227, end: 20180701
  7. LIMAS [Concomitant]
     Active Substance: LITHIUM CARBONATE
     Indication: APLASTIC ANAEMIA
     Dosage: UNK
     Route: 065
     Dates: end: 20181212

REACTIONS (5)
  - Optic atrophy [Not Recovered/Not Resolved]
  - Visual field defect [Unknown]
  - Alveolar proteinosis [Not Recovered/Not Resolved]
  - Interstitial lung disease [Not Recovered/Not Resolved]
  - Proteinuria [Recovering/Resolving]

NARRATIVE: CASE EVENT DATE: 201805
